FAERS Safety Report 17941934 (Version 1)
Quarter: 2020Q2

REPORT INFORMATION
  Report Type: Spontaneous
  Country: US (occurrence: US)
  Receive Date: 20200624
  Receipt Date: 20200624
  Transmission Date: 20200714
  Serious: Yes (Hospitalization)
  Sender: FDA-Public Use
  Company Number: None

PATIENT
  Age: 49 Year
  Sex: Male
  Weight: 68.04 kg

DRUGS (2)
  1. NITROGLYCERIN 0.25% COMPOUND [Suspect]
     Active Substance: NITROGLYCERIN
     Indication: ANAL FISSURE
     Route: 061
     Dates: start: 20200624, end: 20200624
  2. NITROGLYCERIN 0.25 % OINTMENT [Concomitant]
     Dates: start: 20200624, end: 20200624

REACTIONS (2)
  - Dizziness [None]
  - Loss of consciousness [None]

NARRATIVE: CASE EVENT DATE: 20200624
